FAERS Safety Report 6501330-X (Version None)
Quarter: 2009Q4

REPORT INFORMATION
  Report Type: 
  Country: None (occurrence: None)
  Receive Date: 20091127
  Receipt Date: 20081006
  Transmission Date: 20100525
  Serious: Yes (Other)
  Sender: FDA-Public Use
  Company Number: WAES 0805USA00961

PATIENT
  Age: 48 Year
  Sex: Female
  Weight: 68.0396 kg

DRUGS (3)
  1. FOSAMAX [Suspect]
     Indication: OSTEOPOROSIS
     Dosage: 10 MG/DAILY/PO; 70 MG/WKY/PO
     Route: 048
     Dates: start: 19970318, end: 19970401
  2. FOSAMAX [Suspect]
     Indication: OSTEOPOROSIS
     Dosage: 10 MG/DAILY/PO; 70 MG/WKY/PO
     Route: 048
     Dates: start: 19970407
  3. FOSAMAX [Suspect]
     Indication: OSTEOPOROSIS
     Dosage: 10 MG/DAILY/PO; 70 MG/WKY/PO
     Route: 048
     Dates: start: 20040101

REACTIONS (37)
  - AMBLYOPIA [None]
  - BRONCHITIS CHRONIC [None]
  - CACHEXIA [None]
  - CHEST PAIN [None]
  - CHRONIC OBSTRUCTIVE PULMONARY DISEASE [None]
  - COLITIS [None]
  - DENTAL CARIES [None]
  - DEPRESSION [None]
  - DYSPEPSIA [None]
  - GASTROOESOPHAGEAL REFLUX DISEASE [None]
  - HYPERLIPIDAEMIA [None]
  - HYPOTENSION [None]
  - INSOMNIA [None]
  - JOINT SPRAIN [None]
  - JOINT SWELLING [None]
  - LYMPHADENITIS [None]
  - MUSCULOSKELETAL CHEST PAIN [None]
  - NYSTAGMUS [None]
  - ORAL CANDIDIASIS [None]
  - OSTEOARTHRITIS [None]
  - OSTEOMYELITIS [None]
  - OSTEONECROSIS [None]
  - PELVIC PAIN [None]
  - PERIODONTITIS [None]
  - PHARYNGITIS STREPTOCOCCAL [None]
  - POSTNASAL DRIP [None]
  - PSORIASIS [None]
  - RESORPTION BONE INCREASED [None]
  - RHINITIS [None]
  - RHINITIS ALLERGIC [None]
  - RIB FRACTURE [None]
  - SCOLIOSIS [None]
  - SINUSITIS [None]
  - SKIN LESION [None]
  - TEMPOROMANDIBULAR JOINT SYNDROME [None]
  - TOOTH INFECTION [None]
  - WEIGHT DECREASED [None]
